FAERS Safety Report 20931968 (Version 1)
Quarter: 2022Q2

REPORT INFORMATION
  Report Type: Spontaneous
  Country: FR (occurrence: FR)
  Receive Date: 20220608
  Receipt Date: 20220608
  Transmission Date: 20220721
  Serious: No
  Sender: FDA-Public Use
  Company Number: FR-PFIZER INC-202200676356

PATIENT
  Age: 13 Month
  Sex: Female

DRUGS (1)
  1. NEISVAC-C [Suspect]
     Active Substance: MENINGOCOCCAL POLYSACCHARIDE VACCINE C
     Dosage: UNK

REACTIONS (2)
  - Accidental exposure to product [Unknown]
  - Device issue [Unknown]
